FAERS Safety Report 6143764-1 (Version None)
Quarter: 2009Q2

REPORT INFORMATION
  Report Type: 
  Country: None (occurrence: None)
  Receive Date: 20090403
  Receipt Date: 20090324
  Transmission Date: 20091009
  Serious: Yes (Other)
  Sender: FDA-Public Use
  Company Number: PHHY2009SI11679

PATIENT
  Sex: Male

DRUGS (2)
  1. LEPONEX [Suspect]
     Indication: SCHIZOPHRENIA
     Dosage: 800 MG DAILY
  2. SEROQUEL [Concomitant]
     Dosage: 600 MG

REACTIONS (1)
  - LYMPHOCYTE COUNT DECREASED [None]
